FAERS Safety Report 7965363-9 (Version None)
Quarter: 2011Q4

REPORT INFORMATION
  Report Type: 
  Country: None (occurrence: None)
  Receive Date: 20111208
  Receipt Date: 20111208
  Transmission Date: 20120403
  Serious: Yes (Other)
  Sender: FDA-Public Use
  Company Number: DE-BAYER-2011-117664

PATIENT

DRUGS (1)
  1. BETASERON [Suspect]

REACTIONS (2)
  - TRANSAMINASES INCREASED [None]
  - JAUNDICE [None]
